FAERS Safety Report 5724250-7 (Version None)
Quarter: 2008Q2

REPORT INFORMATION
  Report Type: 
  Country: None (occurrence: None)
  Receive Date: 20080430
  Receipt Date: 20080418
  Transmission Date: 20081010
  Serious: Yes (Other)
  Sender: FDA-Public Use
  Company Number: AU-PFIZER INC-2008034949

PATIENT
  Age: 81 Year
  Sex: Female

DRUGS (4)
  1. SILDENAFIL CITRATE [Suspect]
     Indication: PULMONARY HYPERTENSION
  2. CARDIZEM [Concomitant]
  3. WARFARIN SODIUM [Concomitant]
  4. LASIX [Concomitant]

REACTIONS (2)
  - BLINDNESS [None]
  - CHROMATOPSIA [None]
